FAERS Safety Report 5126148-4 (Version None)
Quarter: 2006Q3

REPORT INFORMATION
  Report Type: 
  Country: None (occurrence: None)
  Receive Date: 20060823
  Receipt Date: 20060224
  Transmission Date: 20061208
  Serious: Yes (Hospitalization)
  Sender: FDA-Public Use
  Company Number: 2006027341

PATIENT
  Age: 86 Year
  Sex: Male
  Weight: 75.7507 kg

DRUGS (5)
  1. NORVASC [Suspect]
     Indication: BLOOD PRESSURE
     Dosage: SEE IMAGE
     Dates: start: 20050101
  2. NORVASC [Suspect]
     Indication: BLOOD PRESSURE
     Dosage: SEE IMAGE
     Dates: start: 20060126
  3. LYRICA [Suspect]
     Indication: POST HERPETIC NEURALGIA
     Dosage: 100 MG (50 MG,BID)
     Dates: start: 20060123, end: 20060124
  4. COUMADIN [Concomitant]
  5. ALLOPURINOL [Concomitant]

REACTIONS (3)
  - GOUT [None]
  - INTERVERTEBRAL DISC PROTRUSION [None]
  - MUSCULAR WEAKNESS [None]
